FAERS Safety Report 16268684 (Version 1)
Quarter: 2019Q2

REPORT INFORMATION
  Report Type: Report from Study
  Country: US (occurrence: US)
  Receive Date: 20190503
  Receipt Date: 20190503
  Transmission Date: 20190711
  Serious: Yes (Death, Disabling, Other)
  Sender: FDA-Public Use
  Company Number: US-REGENERON PHARMACEUTICALS, INC.-2019-19107

PATIENT

DRUGS (6)
  1. EYLEA [Suspect]
     Active Substance: AFLIBERCEPT
     Dosage: 2 MG, 0,05 ML, Q6W/ PRN, LAST INJECTION IN OD
     Route: 031
     Dates: start: 20180220, end: 20180220
  2. EYLEA [Suspect]
     Active Substance: AFLIBERCEPT
     Indication: DIABETIC RETINAL OEDEMA
     Dosage: 2 MG, 0,05 ML, OD, Q6W/ PRN
     Route: 031
     Dates: start: 20180103, end: 20180103
  3. EYLEA [Suspect]
     Active Substance: AFLIBERCEPT
     Dosage: 2 MG, 0,05 ML,, OS, Q6W/ PRN
     Route: 031
     Dates: start: 20180110, end: 20180110
  4. EYLEA [Suspect]
     Active Substance: AFLIBERCEPT
     Dosage: 2 MG, 0,05 ML, OD, Q6W/ PRN
     Route: 031
     Dates: start: 20180208, end: 20180208
  5. EYLEA [Suspect]
     Active Substance: AFLIBERCEPT
     Dosage: 2 MG, 0,05 ML,Q6W/ PRN, LAST INJECTION IN OS
     Route: 031
     Dates: start: 20180418, end: 20180418
  6. EYLEA [Suspect]
     Active Substance: AFLIBERCEPT
     Indication: DIABETIC RETINOPATHY
     Dosage: 2 MG, 0,05 ML,, OS, Q6W/ PRN
     Route: 031
     Dates: start: 20171121

REACTIONS (4)
  - Blindness unilateral [Unknown]
  - Intentional dose omission [Unknown]
  - Death [Fatal]
  - Visual acuity reduced [Unknown]

NARRATIVE: CASE EVENT DATE: 20181001
